FAERS Safety Report 6380269-7 (Version None)
Quarter: 2009Q3

REPORT INFORMATION
  Report Type: 
  Country: None (occurrence: None)
  Receive Date: 20090921
  Receipt Date: 20090907
  Transmission Date: 20100115
  Serious: Yes (Hospitalization)
  Sender: FDA-Public Use
  Company Number: 8035302

PATIENT
  Age: 48 Year
  Sex: Female
  Weight: 98.5 kg

DRUGS (7)
  1. CDP870 400MG [Suspect]
     Indication: RHEUMATOID ARTHRITIS
     Dosage: 400 MG 1/2W SC
     Route: 058
     Dates: start: 20060418, end: 20071225
  2. CDP870 400MG [Suspect]
     Indication: RHEUMATOID ARTHRITIS
     Dosage: 200 MG 1/2W SC
     Route: 058
     Dates: start: 20071225, end: 20080722
  3. CDP870 400MG [Suspect]
     Indication: RHEUMATOID ARTHRITIS
     Dosage: 400 MG 1/2W SC
     Route: 058
     Dates: start: 20080804
  4. METHOTREXATE [Concomitant]
  5. PREDNISOLONE [Concomitant]
  6. NIMELIDE [Concomitant]
  7. ENALAPRIL MALEATE [Concomitant]

REACTIONS (2)
  - ARTHROPOD BITE [None]
  - LYME DISEASE [None]
